FAERS Safety Report 13587174 (Version 7)
Quarter: 2017Q3

REPORT INFORMATION
  Report Type: Spontaneous
  Country: KR (occurrence: KR)
  Receive Date: 20170526
  Receipt Date: 20170912
  Transmission Date: 20171127
  Serious: Yes (Death, Hospitalization, Other)
  Sender: FDA-Public Use
  Company Number: KR-009507513-1611KOR009382

PATIENT
  Age: 59 Year
  Sex: Female
  Weight: 49.1 kg

DRUGS (63)
  1. CISPLAN [Concomitant]
     Active Substance: CISPLATIN
     Indication: MALIGNANT NEOPLASM OF THYMUS
     Dosage: 102 MG, ONCE, CYCLE 1
     Route: 042
     Dates: start: 20160713, end: 20160713
  2. CISPLAN [Concomitant]
     Active Substance: CISPLATIN
     Dosage: 75 MG, ONCE, CYCLE 5
     Route: 042
     Dates: start: 20170307, end: 20170307
  3. SANCUSO [Concomitant]
     Active Substance: GRANISETRON
     Dosage: 1 DF (REPORTED AS ^EA^), QD
     Route: 062
     Dates: start: 20160802, end: 20160808
  4. PANTOPRAZOLE SODIUM. [Concomitant]
     Active Substance: PANTOPRAZOLE SODIUM
     Indication: PROPHYLAXIS
     Dosage: 20 MG, QD
     Route: 048
  5. CURAN [Concomitant]
     Active Substance: RANITIDINE HYDROCHLORIDE
     Dosage: 50 MG, ONCE (STRENGTH: 50MG/2ML)
     Route: 042
     Dates: start: 20160802, end: 20160802
  6. CURAN [Concomitant]
     Active Substance: RANITIDINE HYDROCHLORIDE
     Dosage: 50 MG, QD (STRENGTH: 50MG/2ML)
     Route: 042
     Dates: start: 20161206, end: 20161209
  7. CURAN [Concomitant]
     Active Substance: RANITIDINE HYDROCHLORIDE
     Dosage: 50 MG, QD (STRENGTH: 50MG/2ML)
     Route: 042
     Dates: start: 20161227, end: 20161228
  8. LASIX [Concomitant]
     Active Substance: FUROSEMIDE
     Indication: OEDEMA
     Dosage: 20 MG, ONCE (STRENGTH: 20MG/ML)
     Route: 042
     Dates: start: 20160713, end: 20160713
  9. LASIX [Concomitant]
     Active Substance: FUROSEMIDE
     Dosage: 20 MG, ONCE (STRENGTH: 20MG/ML)
     Route: 042
     Dates: start: 20161227, end: 20161227
  10. LASIX [Concomitant]
     Active Substance: FUROSEMIDE
     Dosage: 20 MG, ONCE (STRENGTH: 20MG/ML)
     Route: 042
     Dates: start: 20170207, end: 20170207
  11. CISPLAN [Concomitant]
     Active Substance: CISPLATIN
     Indication: CHEMOTHERAPY
     Dosage: 81 MG, ONCE, CYCLE 2
     Route: 042
     Dates: start: 20160802, end: 20160802
  12. DEXAMETHASONE SODIUM PHOSPHATE. [Concomitant]
     Active Substance: DEXAMETHASONE SODIUM PHOSPHATE
     Dosage: 12 MG, ONCE
     Route: 042
     Dates: start: 20160802, end: 20160802
  13. SANCUSO [Concomitant]
     Active Substance: GRANISETRON
     Dosage: 1 DF (REPORTED AS ^EA^), QD
     Route: 062
     Dates: start: 20161205, end: 20161211
  14. CENTRUM (MINERALS (UNSPECIFIED) (+) VITAMINS (UNSPECIFIED)) [Concomitant]
     Indication: VITAMIN SUPPLEMENTATION
     Dosage: 1 TABLET, QD
     Route: 048
     Dates: start: 20160713, end: 20160925
  15. CURAN [Concomitant]
     Active Substance: RANITIDINE HYDROCHLORIDE
     Dosage: 50 MG, QD (STRENGTH: 50MG/2ML)
     Route: 042
     Dates: start: 20170328, end: 20170329
  16. LUTHIONE [Concomitant]
     Dosage: 1800 MG, ONCE
     Route: 042
     Dates: start: 20170307, end: 20170307
  17. LASIX [Concomitant]
     Active Substance: FUROSEMIDE
     Dosage: 20 MG, ONCE (STRENGTH: 20MG/ML)
     Route: 042
     Dates: start: 20170307, end: 20170307
  18. LASIX [Concomitant]
     Active Substance: FUROSEMIDE
     Dosage: 20 MG, ONCE (STRENGTH: 20MG/ML)
     Route: 042
     Dates: start: 20170407, end: 20170407
  19. LASIX [Concomitant]
     Active Substance: FUROSEMIDE
     Dosage: 10 MG, BID (STRENGTH: 20MG/ML)
     Route: 042
     Dates: start: 20170409, end: 20170411
  20. LASIX [Concomitant]
     Active Substance: FUROSEMIDE
     Dosage: 20 MG, ONCE (STRENGTH: 20MG/ML)
     Route: 042
     Dates: start: 20170410, end: 20170410
  21. EMEND (FOSAPREPITANT DIMEGLUMINE) [Suspect]
     Active Substance: FOSAPREPITANT DIMEGLUMINE
     Dosage: 150 MG, ONCE
     Route: 042
     Dates: start: 20170328, end: 20170328
  22. LASTET [Concomitant]
     Active Substance: ETOPOSIDE
     Indication: CHEMOTHERAPY
     Dosage: 147 MG, QD
     Route: 042
     Dates: start: 20160713, end: 20160715
  23. CISPLAN [Concomitant]
     Active Substance: CISPLATIN
     Dosage: 73 MG, ONCE, CYCLE 2
     Route: 042
     Dates: start: 20161227, end: 20161227
  24. CISPLAN [Concomitant]
     Active Substance: CISPLATIN
     Dosage: 72 MG, ONCE, CYCLE 3
     Route: 042
     Dates: start: 20170117, end: 20170117
  25. ASPIRIN. [Concomitant]
     Active Substance: ASPIRIN
     Indication: HYPERTENSION
     Dosage: 100 MG, QD
     Route: 048
     Dates: end: 20170420
  26. CENTRUM (MINERALS (UNSPECIFIED) (+) VITAMINS (UNSPECIFIED)) [Concomitant]
     Indication: MINERAL SUPPLEMENTATION
     Dosage: 1 TABLET,QD
     Route: 048
     Dates: start: 20161227, end: 20170413
  27. CURAN [Concomitant]
     Active Substance: RANITIDINE HYDROCHLORIDE
     Dosage: 50 MG, QD (STRENGTH: 50MG/2ML)
     Route: 042
     Dates: start: 20170207, end: 20170208
  28. LUTHIONE [Concomitant]
     Dosage: 1800 MG, ONCE
     Route: 042
     Dates: start: 20170117, end: 20170117
  29. LASIX [Concomitant]
     Active Substance: FUROSEMIDE
     Dosage: 20 MG, ONCE (STRENGTH: 20MG/ML)
     Route: 042
     Dates: start: 20161206, end: 20161206
  30. LASIX [Concomitant]
     Active Substance: FUROSEMIDE
     Dosage: 5 MG, ONCE (STRENGTH: 20MG/ML)
     Route: 042
     Dates: start: 20170409, end: 20170409
  31. XANAX [Concomitant]
     Active Substance: ALPRAZOLAM
     Indication: NAUSEA
     Dosage: 0.25 MG, BID
     Route: 048
     Dates: start: 20160801, end: 20160822
  32. EMEND (FOSAPREPITANT DIMEGLUMINE) [Suspect]
     Active Substance: FOSAPREPITANT DIMEGLUMINE
     Dosage: 150 MG, ONCE
     Route: 042
     Dates: start: 20161206, end: 20161206
  33. EMEND (FOSAPREPITANT DIMEGLUMINE) [Suspect]
     Active Substance: FOSAPREPITANT DIMEGLUMINE
     Dosage: 150 MG, ONCE
     Route: 042
     Dates: start: 20161227, end: 20161227
  34. EMEND (FOSAPREPITANT DIMEGLUMINE) [Suspect]
     Active Substance: FOSAPREPITANT DIMEGLUMINE
     Dosage: 150 MG, ONCE
     Route: 042
     Dates: start: 20170207, end: 20170207
  35. SANCUSO [Concomitant]
     Active Substance: GRANISETRON
     Dosage: 1 DF (REPORTED AS ^EA^), QD
     Route: 062
     Dates: start: 20170116, end: 20170122
  36. SANCUSO [Concomitant]
     Active Substance: GRANISETRON
     Dosage: 1 DF (REPORTED AS ^EA^), QD
     Route: 062
     Dates: start: 20170206, end: 20170212
  37. CURAN [Concomitant]
     Active Substance: RANITIDINE HYDROCHLORIDE
     Indication: PROPHYLAXIS
     Dosage: 50 MG, ONCE (STRENGTH: 50MG/2ML)
     Route: 042
     Dates: start: 20160713, end: 20160713
  38. LUTHIONE [Concomitant]
     Indication: PROPHYLAXIS
     Dosage: 1800 MG, ONCE
     Route: 042
     Dates: start: 20161206, end: 20161206
  39. LASIX [Concomitant]
     Active Substance: FUROSEMIDE
     Indication: DYSPNOEA
     Dosage: 20 MG, ONCE (STRENGTH: 20MG/ML)
     Route: 042
     Dates: start: 20160802, end: 20160802
  40. LASIX [Concomitant]
     Active Substance: FUROSEMIDE
     Dosage: 20 MG, ONCE (STRENGTH: 20MG/ML)
     Route: 042
     Dates: start: 20170220, end: 20170220
  41. LASTET [Concomitant]
     Active Substance: ETOPOSIDE
     Indication: MALIGNANT NEOPLASM OF THYMUS
     Dosage: 146 MG, QD
     Route: 042
     Dates: start: 20160802, end: 20160804
  42. DEXAMETHASONE SODIUM PHOSPHATE. [Concomitant]
     Active Substance: DEXAMETHASONE SODIUM PHOSPHATE
     Indication: PROPHYLAXIS OF NAUSEA AND VOMITING
     Dosage: 12 MG, ONCE
     Route: 042
     Dates: start: 20160713, end: 20170613
  43. SANCUSO [Concomitant]
     Active Substance: GRANISETRON
     Dosage: 1 DF (REPORTED AS ^EA^), QD
     Route: 062
     Dates: start: 20170327, end: 20170402
  44. CURAN [Concomitant]
     Active Substance: RANITIDINE HYDROCHLORIDE
     Dosage: 50 MG, QD (STRENGTH: 50MG/2ML)
     Route: 042
     Dates: start: 20170117, end: 20170118
  45. LUTHIONE [Concomitant]
     Indication: PROPHYLAXIS
     Dosage: 1800 MG, ONCE
     Route: 042
     Dates: start: 20160802, end: 20160802
  46. LUTHIONE [Concomitant]
     Dosage: 1800 MG, ONCE
     Route: 042
     Dates: start: 20170207, end: 20170207
  47. LASIX [Concomitant]
     Active Substance: FUROSEMIDE
     Dosage: 20 MG, ONCE (STRENGTH: 20MG/ML)
     Route: 042
     Dates: start: 20170320, end: 20170320
  48. EMEND (FOSAPREPITANT DIMEGLUMINE) [Suspect]
     Active Substance: FOSAPREPITANT DIMEGLUMINE
     Indication: PROPHYLAXIS OF NAUSEA AND VOMITING
     Dosage: 150 MG, ONCE
     Route: 042
     Dates: start: 20160713, end: 20160713
  49. CISPLAN [Concomitant]
     Active Substance: CISPLATIN
     Dosage: 74 MG, ONCE, CYCLE 4
     Route: 042
     Dates: start: 20170207, end: 20170207
  50. SANCUSO [Concomitant]
     Active Substance: GRANISETRON
     Indication: PROPHYLAXIS OF NAUSEA AND VOMITING
     Dosage: 1 DF (REPORTED AS ^EA^), QD
     Route: 062
     Dates: start: 20160712, end: 20160718
  51. SANCUSO [Concomitant]
     Active Substance: GRANISETRON
     Dosage: 1 DF (REPORTED AS ^EA^), QD
     Route: 062
     Dates: start: 20170306, end: 20170312
  52. ATACAND PLUS [Concomitant]
     Active Substance: CANDESARTAN CILEXETIL\HYDROCHLOROTHIAZIDE
     Indication: HYPERTENSION
     Dosage: 16 MG, QD
     Route: 048
     Dates: end: 20170305
  53. LUTHIONE [Concomitant]
     Indication: PROPHYLAXIS
     Dosage: 1800 MG, ONCE
     Route: 042
     Dates: start: 20160713, end: 20160713
  54. EMEND (FOSAPREPITANT DIMEGLUMINE) [Suspect]
     Active Substance: FOSAPREPITANT DIMEGLUMINE
     Dosage: 150 MG, ONCE
     Route: 042
     Dates: start: 20160802, end: 20160802
  55. SANCUSO [Concomitant]
     Active Substance: GRANISETRON
     Dosage: 1 DF (REPORTED AS ^EA^), QD
     Route: 062
     Dates: start: 20161226, end: 20170101
  56. LUTHIONE [Concomitant]
     Dosage: 1800 MG, ONCE
     Route: 042
     Dates: start: 20170328, end: 20170328
  57. LASIX [Concomitant]
     Active Substance: FUROSEMIDE
     Dosage: 20 MG, ONCE (STRENGTH: 20MG/ML)
     Route: 042
     Dates: start: 20170117, end: 20170117
  58. EMEND (FOSAPREPITANT DIMEGLUMINE) [Suspect]
     Active Substance: FOSAPREPITANT DIMEGLUMINE
     Dosage: 150 MG, ONCE
     Route: 042
     Dates: start: 20170117, end: 20170117
  59. EMEND (FOSAPREPITANT DIMEGLUMINE) [Suspect]
     Active Substance: FOSAPREPITANT DIMEGLUMINE
     Dosage: 150 MG, ONCE
     Route: 042
     Dates: start: 20170307, end: 20170307
  60. CISPLAN [Concomitant]
     Active Substance: CISPLATIN
     Dosage: 74 MG, ONCE, CYCLE 1
     Route: 042
     Dates: start: 20161206, end: 20161206
  61. CISPLAN [Concomitant]
     Active Substance: CISPLATIN
     Dosage: 75 MG, ONCE, CYCLE 6
     Route: 042
     Dates: start: 20170328, end: 20170328
  62. CURAN [Concomitant]
     Active Substance: RANITIDINE HYDROCHLORIDE
     Dosage: 50 MG, ONCE (STRENGTH: 50MG/2ML)
     Route: 042
     Dates: start: 20170307, end: 20170307
  63. LUTHIONE [Concomitant]
     Dosage: 1800 MG, ONCE
     Route: 042
     Dates: start: 20161227, end: 20161227

REACTIONS (17)
  - Cardiac failure [Recovered/Resolved]
  - Pain [Recovered/Resolved]
  - Cough [Recovered/Resolved]
  - Nausea [Recovered/Resolved]
  - Pneumonia [Fatal]
  - Neutropenia [Recovered/Resolved]
  - Neutropenia [Unknown]
  - Catheter site pain [Recovered/Resolved]
  - Febrile neutropenia [Recovered/Resolved]
  - Neutropenia [Recovered/Resolved]
  - Nausea [Recovered/Resolved]
  - Pruritus [Recovered/Resolved]
  - Anaemia [Not Recovered/Not Resolved]
  - Neutropenia [Recovered/Resolved]
  - Productive cough [Recovered/Resolved]
  - Platelet count decreased [Not Recovered/Not Resolved]
  - Nausea [Recovered/Resolved]

NARRATIVE: CASE EVENT DATE: 20160802
